FAERS Safety Report 18589460 (Version 12)
Quarter: 2022Q2

REPORT INFORMATION
  Report Type: Spontaneous
  Country: US (occurrence: US)
  Receive Date: 20201208
  Receipt Date: 20220603
  Transmission Date: 20220721
  Serious: Yes (Hospitalization, Other)
  Sender: FDA-Public Use
  Company Number: US-GLAXOSMITHKLINE-US2020AMR238689

PATIENT

DRUGS (2)
  1. NUCALA [Suspect]
     Active Substance: MEPOLIZUMAB
     Indication: Asthma
     Dosage: UNK
     Route: 058
     Dates: start: 201906, end: 202101
  2. NUCALA [Suspect]
     Active Substance: MEPOLIZUMAB
     Indication: Eosinophilic granulomatosis with polyangiitis
     Dosage: UNK
     Route: 058
     Dates: start: 202203

REACTIONS (26)
  - Weight decreased [Not Recovered/Not Resolved]
  - Hospitalisation [Unknown]
  - Starvation [Recovering/Resolving]
  - Anaphylactic reaction [Recovering/Resolving]
  - Surgical procedure repeated [Recovering/Resolving]
  - Surgery [Recovering/Resolving]
  - Unresponsive to stimuli [Not Recovered/Not Resolved]
  - Internal haemorrhage [Unknown]
  - Eosinophilic granulomatosis with polyangiitis [Recovering/Resolving]
  - Loss of consciousness [Unknown]
  - Condition aggravated [Recovering/Resolving]
  - Cardiac disorder [Not Recovered/Not Resolved]
  - Malaise [Not Recovered/Not Resolved]
  - Lung disorder [Not Recovered/Not Resolved]
  - Injury [Unknown]
  - Cough [Unknown]
  - Contusion [Unknown]
  - Respiration abnormal [Unknown]
  - Pulmonary function test decreased [Unknown]
  - Illness [Recovering/Resolving]
  - Central venous catheterisation [Recovering/Resolving]
  - Dehydration [Not Recovered/Not Resolved]
  - Therapeutic product effect incomplete [Unknown]
  - Product storage error [Unknown]
  - Product dose omission issue [Unknown]
  - Treatment noncompliance [Not Recovered/Not Resolved]

NARRATIVE: CASE EVENT DATE: 20180901
